FAERS Safety Report 6287522-6 (Version None)
Quarter: 2009Q3

REPORT INFORMATION
  Report Type: 
  Country: None (occurrence: None)
  Receive Date: 20090727
  Receipt Date: 20090715
  Transmission Date: 20100115
  Serious: Yes (Hospitalization)
  Sender: FDA-Public Use
  Company Number: 2009AL001788

PATIENT
  Age: 75 Year
  Sex: Male

DRUGS (13)
  1. DIGOXIN [Suspect]
     Dosage: 0.125MG, PO
     Route: 048
     Dates: start: 20050721, end: 20080721
  2. COREG [Concomitant]
  3. PROPOXYPHENE HCL CAP [Concomitant]
  4. WARFARIN SODIUM [Concomitant]
  5. FUROSEMIDE [Concomitant]
  6. TORSEMIDE [Concomitant]
  7. JANTOVEN [Concomitant]
  8. METOPROLOL TARTRATE [Concomitant]
  9. LISINOPRIL [Concomitant]
  10. ASPIRIN [Concomitant]
  11. ZOCOR [Concomitant]
  12. ALBUTEROL [Concomitant]
  13. SYNTHROID [Concomitant]

REACTIONS (14)
  - AORTIC STENOSIS [None]
  - ATRIAL FIBRILLATION [None]
  - BUNDLE BRANCH BLOCK LEFT [None]
  - CARDIAC FAILURE CONGESTIVE [None]
  - DIZZINESS [None]
  - DYSPNOEA [None]
  - ECONOMIC PROBLEM [None]
  - HEART RATE INCREASED [None]
  - HERPES ZOSTER [None]
  - HYDROPNEUMOTHORAX [None]
  - HYPOAESTHESIA [None]
  - INJURY [None]
  - MALAISE [None]
  - PNEUMONIA [None]
